FAERS Safety Report 23953509 (Version 1)
Quarter: 2024Q2

REPORT INFORMATION
  Report Type: Spontaneous
  Country: NL (occurrence: NL)
  Receive Date: 20240608
  Receipt Date: 20240608
  Transmission Date: 20240715
  Serious: Yes (Other)
  Sender: FDA-Public Use
  Company Number: NL-AUROBINDO-AUR-APL-2024-027749

PATIENT
  Age: 75 Year
  Sex: Male

DRUGS (3)
  1. FLUCLOXACILLIN [Suspect]
     Active Substance: FLUCLOXACILLIN
     Indication: Infection
     Dosage: UNK
     Route: 042
  2. ACETAMINOPHEN [Suspect]
     Active Substance: ACETAMINOPHEN
     Indication: Infection
     Dosage: HIGH DOSE
     Route: 042
  3. RIFAMPIN [Suspect]
     Active Substance: RIFAMPIN
     Indication: Infection
     Dosage: UNK
     Route: 042

REACTIONS (1)
  - Metabolic acidosis [Unknown]
